FAERS Safety Report 9860613 (Version 1)
Quarter: 2014Q1

REPORT INFORMATION
  Report Type: Spontaneous
  Country: US (occurrence: None)
  Receive Date: 20140131
  Receipt Date: 20140131
  Transmission Date: 20141002
  Serious: Yes (Other)
  Sender: FDA-Public Use
  Company Number: None

PATIENT
  Age: 68 Year
  Sex: Female
  Weight: 86.18 kg

DRUGS (1)
  1. METOPROLOL [Suspect]
     Route: 048

REACTIONS (3)
  - Heart rate increased [None]
  - Thrombosis [None]
  - Drug ineffective [None]
